FAERS Safety Report 6817066-1 (Version None)
Quarter: 2010Q3

REPORT INFORMATION
  Report Type: 
  Country: None (occurrence: None)
  Receive Date: 20100706
  Receipt Date: 20100624
  Transmission Date: 20110219
  Serious: Yes (Hospitalization)
  Sender: FDA-Public Use
  Company Number: DE-JNJFOC-20080900197

PATIENT
  Sex: Male
  Weight: 79 kg

DRUGS (26)
  1. GOLIMUMAB [Suspect]
     Indication: RHEUMATOID ARTHRITIS
     Route: 058
  2. GOLIMUMAB [Suspect]
     Route: 058
  3. GOLIMUMAB [Suspect]
     Route: 058
  4. GOLIMUMAB [Suspect]
     Route: 058
  5. GOLIMUMAB [Suspect]
     Route: 058
  6. GOLIMUMAB [Suspect]
     Route: 058
  7. GOLIMUMAB [Suspect]
     Route: 058
  8. PLACEBO [Suspect]
     Indication: RHEUMATOID ARTHRITIS
     Route: 058
  9. PLACEBO [Suspect]
     Route: 058
  10. PLACEBO [Suspect]
     Route: 058
  11. PLACEBO [Suspect]
     Route: 058
  12. PLACEBO [Suspect]
     Route: 058
  13. PLACEBO [Suspect]
     Route: 058
  14. PREDNISOLON [Concomitant]
     Route: 048
  15. ACETYLSALICYLIC ACID [Concomitant]
     Route: 048
  16. DIGITOXIN [Concomitant]
     Route: 048
  17. MTX [Concomitant]
     Route: 058
  18. BISOHEXAL [Concomitant]
     Route: 048
  19. TROMCARDIN FORTE [Concomitant]
     Route: 048
  20. MARCUMAR [Concomitant]
     Route: 048
  21. CLEXANE [Concomitant]
     Route: 048
  22. FOLIC ACID [Concomitant]
     Route: 048
  23. VIGANTOLETTEN [Concomitant]
     Route: 048
  24. CALCIMAGON D [Concomitant]
     Route: 048
  25. ENALAPRIL MALEATE AND HYDROCHLOROTHIAZIDE [Concomitant]
     Route: 048
  26. PANTOZOL [Concomitant]
     Route: 048

REACTIONS (1)
  - URINARY TRACT NEOPLASM [None]
